FAERS Safety Report 6212248-4 (Version None)
Quarter: 2009Q2

REPORT INFORMATION
  Report Type: 
  Country: None (occurrence: None)
  Receive Date: 20090529
  Receipt Date: 20090513
  Transmission Date: 20091009
  Serious: Yes (Hospitalization, Other)
  Sender: FDA-Public Use
  Company Number: 2009001464

PATIENT
  Age: 72 Year
  Sex: Female
  Weight: 69.4 kg

DRUGS (3)
  1. ERLOTINIB       (ERLOTINIB) [Suspect]
     Indication: NON-SMALL CELL LUNG CANCER
     Dosage: 150 MG, QD, ORAL
     Route: 048
     Dates: start: 20090414
  2. CARBOPLATIN [Suspect]
     Indication: NON-SMALL CELL LUNG CANCER
     Dates: start: 20090422
  3. PACLITAXEL                   INJECTION FOR INFUSION) [Suspect]
     Indication: NON-SMALL CELL LUNG CANCER
     Dosage: 350 MG, Q3W, INTRAVENOUS
     Route: 042
     Dates: start: 20090422

REACTIONS (3)
  - ARTHRALGIA [None]
  - FEBRILE NEUTROPENIA [None]
  - PAIN [None]
